FAERS Safety Report 4476299-2 (Version None)
Quarter: 2004Q4

REPORT INFORMATION
  Report Type: 
  Country: None (occurrence: None)
  Receive Date: 20041016
  Receipt Date: 20040923
  Transmission Date: 20050328
  Serious: Yes (Hospitalization)
  Sender: FDA-Public Use
  Company Number: PT-MERCK-0409PRT00019

PATIENT
  Age: 87 Year
  Sex: Female
  Weight: 50 kg

DRUGS (6)
  1. ACETAMINOPHEN [Concomitant]
     Route: 042
     Dates: start: 20040910
  2. DIPYRONE MAGNESIUM [Concomitant]
     Indication: PAIN
     Route: 042
     Dates: start: 20040910
  3. INVANZ [Suspect]
     Indication: INFECTION
     Route: 042
     Dates: start: 20040910, end: 20040915
  4. FUROSEMIDE [Concomitant]
     Route: 042
     Dates: start: 20040911
  5. POTASSIUM (UNSPECIFIED) [Concomitant]
     Route: 042
     Dates: start: 20040910
  6. RANITIDINE HYDROCHLORIDE [Concomitant]
     Indication: PROPHYLAXIS
     Route: 042
     Dates: start: 20040910

REACTIONS (2)
  - RASH [None]
  - RASH MACULO-PAPULAR [None]
